FAERS Safety Report 8017483-0 (Version None)
Quarter: 2011Q4

REPORT INFORMATION
  Report Type: 
  Country: None (occurrence: None)
  Receive Date: 20111128
  Receipt Date: 20111128
  Transmission Date: 20120403
  Serious: Yes (Hospitalization, Disabling)
  Sender: FDA-Public Use
  Company Number: None

PATIENT
  Age: 65 Year
  Sex: Female
  Weight: 50.8029 kg

DRUGS (1)
  1. SCOPOLAMINE [Suspect]
     Indication: NAUSEA
     Dosage: 1 FOR 3 DAYS
     Route: 062
     Dates: start: 20111110

REACTIONS (9)
  - LACERATION [None]
  - CONFUSIONAL STATE [None]
  - FALL [None]
  - HALLUCINATION [None]
  - NERVOUSNESS [None]
  - SOMNOLENCE [None]
  - AGITATION [None]
  - ECONOMIC PROBLEM [None]
  - DIZZINESS [None]
